FAERS Safety Report 11308428 (Version 4)
Quarter: 2016Q1

REPORT INFORMATION
  Report Type: Report from Study
  Country: GB (occurrence: GB)
  Receive Date: 20150724
  Receipt Date: 20160205
  Transmission Date: 20160525
  Serious: Yes (Hospitalization, Other)
  Sender: FDA-Public Use
  Company Number: GB-AMGEN-GBRSP2015073225

PATIENT
  Age: 80 Year
  Sex: Female

DRUGS (1)
  1. ARANESP [Suspect]
     Active Substance: DARBEPOETIN ALFA
     Indication: PRODUCT USED FOR UNKNOWN INDICATION
     Dosage: 30 MUG, Q3WK
     Route: 065

REACTIONS (2)
  - Terminal state [Unknown]
  - Hospitalisation [Not Recovered/Not Resolved]
